FAERS Safety Report 10528970 (Version 1)
Quarter: 2014Q4

REPORT INFORMATION
  Report Type: Spontaneous
  Country: FR (occurrence: None)
  Receive Date: 20141014
  Receipt Date: 20141014
  Transmission Date: 20150528
  Serious: Yes (Hospitalization)
  Sender: FDA-Public Use
  Company Number: B0989917A

PATIENT
  Age: 66 Year
  Sex: Female

DRUGS (15)
  1. PAROXETINE HYDROCHLORIDE. [Suspect]
     Active Substance: PAROXETINE HYDROCHLORIDE
     Indication: DEPRESSION
     Dates: end: 20140404
  2. PARACETAMOL [Concomitant]
     Active Substance: ACETAMINOPHEN
  3. LYSINE ASPIRIN [Concomitant]
     Active Substance: ASPIRIN DL-LYSINE
  4. CHONDROITIN SULFATE (BOVINE) [Concomitant]
     Active Substance: CHONDROITIN SULFATE (BOVINE)
  5. POTASSIUM CHLORIDE. [Concomitant]
     Active Substance: POTASSIUM CHLORIDE
  6. CYAMEMAZINE [Suspect]
     Active Substance: CYAMEMAZINE
     Indication: DEPRESSION
     Dates: start: 201403, end: 20140404
  7. AZATHIOPRINE. [Concomitant]
     Active Substance: AZATHIOPRINE
  8. ZOLPIDEM [Suspect]
     Active Substance: ZOLPIDEM\ZOLPIDEM TARTRATE
     Indication: DEPRESSION
     Route: 048
     Dates: start: 201309, end: 20140404
  9. TRAMADOL HYDROCHLORIDE. [Suspect]
     Active Substance: TRAMADOL HYDROCHLORIDE
     Indication: PAIN
     Dates: start: 201403, end: 20140404
  10. BETAHISTINE HYDROCHLORIDE [Concomitant]
     Active Substance: BETAHISTINE HYDROCHLORIDE
     Dates: start: 201403, end: 20140404
  11. OLANZAPINE. [Suspect]
     Active Substance: OLANZAPINE
     Indication: DEPRESSION
     Route: 048
     Dates: end: 20140404
  12. CLORAZEPATE DIPOTASSIUM. [Suspect]
     Active Substance: CLORAZEPATE DIPOTASSIUM
     Indication: DEPRESSION
     Dosage: SEE DOSAGE TEXT
     Dates: end: 20140404
  13. VALSARTAN. [Concomitant]
     Active Substance: VALSARTAN
  14. ATORVASTATIN CALCIUM. [Concomitant]
     Active Substance: ATORVASTATIN CALCIUM
  15. CIPROFLOXACIN. [Concomitant]
     Active Substance: CIPROFLOXACIN

REACTIONS (9)
  - Respiratory acidosis [None]
  - Incorrect dose administered [None]
  - Somnolence [None]
  - Hypercapnia [None]
  - Confusional state [None]
  - Hypernatraemia [None]
  - Respiratory distress [None]
  - Hyperventilation [None]
  - Leukocytosis [None]

NARRATIVE: CASE EVENT DATE: 20140404
